FAERS Safety Report 11403501 (Version 1)
Quarter: 2015Q3

REPORT INFORMATION
  Report Type: Spontaneous
  Country: US (occurrence: None)
  Receive Date: 20150820
  Receipt Date: 20150820
  Transmission Date: 20151125
  Serious: Yes (Life-Threatening, Disabling)
  Sender: FDA-Public Use
  Company Number: None

PATIENT
  Age: 61 Year
  Sex: Female
  Weight: 79.38 kg

DRUGS (12)
  1. MULTIPLE VITAMIN [Concomitant]
     Active Substance: VITAMINS
  2. RITALIN [Concomitant]
     Active Substance: METHYLPHENIDATE HYDROCHLORIDE
  3. VITAMIN B12 [Concomitant]
     Active Substance: CYANOCOBALAMIN
  4. IBUPROFEN. [Concomitant]
     Active Substance: IBUPROFEN
  5. GABEPENTIN [Concomitant]
  6. FOLIC ACID. [Concomitant]
     Active Substance: FOLIC ACID
  7. ZOLOFT [Concomitant]
     Active Substance: SERTRALINE HYDROCHLORIDE
  8. BELSOMRA [Suspect]
     Active Substance: SUVOREXANT
     Indication: INSOMNIA
     Dosage: 1 AT BEDTIME
     Route: 048
     Dates: start: 20150708, end: 20150715
  9. MELOXICAM. [Concomitant]
     Active Substance: MELOXICAM
  10. WELLBUTRIN [Concomitant]
     Active Substance: BUPROPION HYDROCHLORIDE
  11. PREVACID [Concomitant]
     Active Substance: LANSOPRAZOLE
  12. CALCIUM WITH MAGNESIUM AND D3 [Concomitant]

REACTIONS (9)
  - Thinking abnormal [None]
  - Movement disorder [None]
  - Pain [None]
  - Dysarthria [None]
  - Memory impairment [None]
  - Gait disturbance [None]
  - Asthenia [None]
  - Depressed level of consciousness [None]
  - Urinary incontinence [None]

NARRATIVE: CASE EVENT DATE: 20150716
